FAERS Safety Report 5252544-0 (Version None)
Quarter: 2007Q1

REPORT INFORMATION
  Report Type: 
  Country: None (occurrence: None)
  Receive Date: 20070227
  Receipt Date: 20070227
  Transmission Date: 20070707
  Serious: Yes (Hospitalization)
  Sender: FDA-Public Use
  Company Number: None

PATIENT
  Age: 32 Year
  Sex: Male

DRUGS (2)
  1. PROTONIX [Suspect]
     Indication: ABDOMINAL PAIN UPPER
     Dosage: 40MG  DAILY  IV
     Route: 042
     Dates: start: 20060304, end: 20060306
  2. TEGRETOL [Concomitant]

REACTIONS (3)
  - EOSINOPHIL COUNT INCREASED [None]
  - GASTROENTERITIS [None]
  - RECTAL HAEMORRHAGE [None]
